FAERS Safety Report 5494503-9 (Version None)
Quarter: 2007Q4

REPORT INFORMATION
  Report Type: 
  Country: None (occurrence: None)
  Receive Date: 20071024
  Receipt Date: 20071016
  Transmission Date: 20080405
  Serious: Yes (Death, Hospitalization)
  Sender: FDA-Public Use
  Company Number: FR-WYE-H00690407

PATIENT
  Sex: Male

DRUGS (4)
  1. CORDARONE [Suspect]
     Route: 048
     Dates: start: 20070130, end: 20070801
  2. ANAFRANIL [Concomitant]
     Route: 048
  3. INIPOMP [Concomitant]
     Route: 048
  4. LYRICA [Concomitant]
     Route: 048
     Dates: start: 20070401

REACTIONS (5)
  - CONCOMITANT DISEASE PROGRESSION [None]
  - HYPERTHYROIDISM [None]
  - LEFT VENTRICULAR FAILURE [None]
  - NORMOCHROMIC NORMOCYTIC ANAEMIA [None]
  - SMALL CELL CARCINOMA [None]
